FAERS Safety Report 13452510 (Version 1)
Quarter: 2017Q2

REPORT INFORMATION
  Report Type: Spontaneous
  Country: US (occurrence: US)
  Receive Date: 20170418
  Receipt Date: 20170418
  Transmission Date: 20170830
  Serious: No
  Sender: FDA-Public Use
  Company Number: US-TEVA-643060USA

PATIENT
  Sex: Female
  Weight: 74.91 kg

DRUGS (12)
  1. CALCIUM [Suspect]
     Active Substance: CALCIUM
     Indication: MINERAL SUPPLEMENTATION
     Dosage: 600 MILLIGRAM DAILY;
     Route: 048
     Dates: start: 201502
  2. TIKOSYN [Suspect]
     Active Substance: DOFETILIDE
     Indication: ATRIAL FIBRILLATION
     Dosage: 1000 MILLIGRAM DAILY;
     Route: 048
     Dates: start: 201409
  3. LISINOPRIL. [Suspect]
     Active Substance: LISINOPRIL
     Dosage: 20 MILLIGRAM DAILY;
     Route: 048
  4. WARFARIN [Suspect]
     Active Substance: WARFARIN
     Indication: CARDIOVASCULAR EVENT PROPHYLAXIS
  5. POTASSIUM CHLORIDE. [Suspect]
     Active Substance: POTASSIUM CHLORIDE
     Indication: ELECTROLYTE SUBSTITUTION THERAPY
     Dosage: 5 MILLIEQUIVALENTS DAILY;
     Route: 048
  6. LIPITOR [Suspect]
     Active Substance: ATORVASTATIN CALCIUM
     Indication: BLOOD CHOLESTEROL
     Dosage: 20 MILLIGRAM DAILY;
     Route: 048
  7. SPIRIVA [Suspect]
     Active Substance: TIOTROPIUM BROMIDE MONOHYDRATE
     Indication: CHRONIC OBSTRUCTIVE PULMONARY DISEASE
     Dosage: 1800 INHALATION CAPSULE ONCE A DAY
     Dates: start: 2014
  8. VITAMIN D3 [Suspect]
     Active Substance: CHOLECALCIFEROL
     Indication: BONE DENSITY ABNORMAL
     Dosage: LWO 1000 UNIT CAPSULES A DAY BY MOUTH
     Route: 048
     Dates: start: 201502
  9. WARFARIN [Suspect]
     Active Substance: WARFARIN
     Indication: THROMBOSIS PROPHYLAXIS
     Dosage: SEE NARRATIVE
     Route: 048
  10. LASIX [Suspect]
     Active Substance: FUROSEMIDE
     Indication: DIURETIC THERAPY
     Dosage: 40 MILLIGRAM DAILY;
     Route: 048
     Dates: start: 2014
  11. METOPROLOL SUCCINATE. [Suspect]
     Active Substance: METOPROLOL SUCCINATE
     Indication: ATRIAL FIBRILLATION
     Dosage: 100 MILLIGRAM DAILY;
     Route: 048
     Dates: start: 201509
  12. BABY ASPIRIN [Suspect]
     Active Substance: ASPIRIN
     Route: 048

REACTIONS (1)
  - Abdominal discomfort [Unknown]
